FAERS Safety Report 9937169 (Version 1)
Quarter: 2014Q1

REPORT INFORMATION
  Report Type: Spontaneous
  Country: US (occurrence: US)
  Receive Date: 20140301
  Receipt Date: 20140301
  Transmission Date: 20141002
  Serious: No
  Sender: FDA-Public Use
  Company Number: US-009507513-1402USA012012

PATIENT
  Sex: Female

DRUGS (1)
  1. NUVARING [Suspect]
     Dosage: UNK
     Route: 067
     Dates: start: 201309

REACTIONS (5)
  - Metrorrhagia [Unknown]
  - Stress [Unknown]
  - Weight decreased [Unknown]
  - Skin odour abnormal [Unknown]
  - Pruritus [Unknown]
